FAERS Safety Report 22058696 (Version 1)
Quarter: 2023Q1

REPORT INFORMATION
  Report Type: Report from Study
  Country: US (occurrence: US)
  Receive Date: 20230303
  Receipt Date: 20230303
  Transmission Date: 20230418
  Serious: Yes (Hospitalization)
  Sender: FDA-Public Use
  Company Number: US-ARGENX-2023-ARGX-US000002

PATIENT

DRUGS (1)
  1. VYVGART [Suspect]
     Active Substance: EFGARTIGIMOD ALFA-FCAB
     Indication: Product used for unknown indication
     Dosage: UNK
     Dates: end: 20230105

REACTIONS (7)
  - Back pain [Unknown]
  - Gait inability [Unknown]
  - Fracture infection [Unknown]
  - Myasthenia gravis crisis [Unknown]
  - Bronchitis [Unknown]
  - Illness [Unknown]
  - Product dose omission issue [Unknown]
